FAERS Safety Report 7919257-5 (Version None)
Quarter: 2011Q4

REPORT INFORMATION
  Report Type: 
  Country: None (occurrence: None)
  Receive Date: 20111116
  Receipt Date: 20111116
  Transmission Date: 20120403
  Serious: No
  Sender: FDA-Public Use
  Company Number: None

PATIENT
  Age: 59 Year
  Sex: Male

DRUGS (1)
  1. IMURAN [Suspect]
     Dates: start: 20090514, end: 20100521

REACTIONS (2)
  - HEPATITIS CHOLESTATIC [None]
  - LIVER INJURY [None]
